FAERS Safety Report 17655451 (Version 5)
Quarter: 2020Q2

REPORT INFORMATION
  Report Type: Spontaneous
  Country: US (occurrence: US)
  Receive Date: 20200410
  Receipt Date: 20200618
  Transmission Date: 20200713
  Serious: No
  Sender: FDA-Public Use
  Company Number: US-PFIZER INC-2020146091

PATIENT
  Age: 69 Year
  Sex: Female

DRUGS (2)
  1. XELJANZ XR [Suspect]
     Active Substance: TOFACITINIB CITRATE
     Dosage: 11 MG, UNK
     Dates: start: 202003
  2. METHOTREXATE SODIUM. [Suspect]
     Active Substance: METHOTREXATE SODIUM
     Dosage: 8 DF, UNK

REACTIONS (6)
  - Product dose omission [Unknown]
  - Skin haemorrhage [Recovered/Resolved]
  - Back pain [Not Recovered/Not Resolved]
  - Blood blister [Recovered/Resolved]
  - Rash erythematous [Unknown]
  - Fatigue [Unknown]
